FAERS Safety Report 21074534 (Version 3)
Quarter: 2022Q4

REPORT INFORMATION
  Report Type: Spontaneous
  Country: US (occurrence: US)
  Receive Date: 20220713
  Receipt Date: 20221012
  Transmission Date: 20230113
  Serious: Yes (Other)
  Sender: FDA-Public Use
  Company Number: US-JNJFOC-20220709247

PATIENT
  Age: 52 Year
  Sex: Female

DRUGS (6)
  1. REMICADE [Suspect]
     Active Substance: INFLIXIMAB
     Indication: Crohn^s disease
     Route: 041
     Dates: start: 2002
  2. REMICADE [Suspect]
     Active Substance: INFLIXIMAB
     Route: 041
     Dates: start: 2003, end: 20220531
  3. SPIRONOLACTONE [Concomitant]
     Active Substance: SPIRONOLACTONE
     Indication: Androgen therapy
     Dates: start: 202005
  4. ESTRADIOL [Concomitant]
     Active Substance: ESTRADIOL
     Dates: start: 202203
  5. TESTOSTERONE [Concomitant]
     Active Substance: TESTOSTERONE
     Dates: start: 202203
  6. RESTASIS [Concomitant]
     Active Substance: CYCLOSPORINE
     Dates: start: 202010

REACTIONS (4)
  - Optic neuritis [Recovering/Resolving]
  - Paraesthesia [Recovering/Resolving]
  - Neuralgia [Unknown]
  - Hypoaesthesia [Recovering/Resolving]

NARRATIVE: CASE EVENT DATE: 20220531
